FAERS Safety Report 8267838-4 (Version None)
Quarter: 2012Q2

REPORT INFORMATION
  Report Type: 
  Country: None (occurrence: None)
  Receive Date: 20120405
  Receipt Date: 20120405
  Transmission Date: 20120825
  Serious: Yes (Hospitalization)
  Sender: FDA-Public Use
  Company Number: None

PATIENT
  Age: 44 Year
  Sex: Female
  Weight: 59 kg

DRUGS (6)
  1. TRILEPTAL [Concomitant]
  2. LIPITOR [Concomitant]
  3. BENADRYL [Concomitant]
  4. METFORMIN HCL [Concomitant]
  5. WELLBUTRIN XL [Suspect]
     Indication: BIPOLAR DISORDER
     Dosage: 300MG X2 QAM PO CHRONIC
     Route: 048
  6. SEROQUEL [Concomitant]

REACTIONS (2)
  - SUBDURAL HAEMORRHAGE [None]
  - GRAND MAL CONVULSION [None]
